FAERS Safety Report 12194401 (Version 1)
Quarter: 2016Q1

REPORT INFORMATION
  Report Type: Spontaneous
  Country: IR (occurrence: IR)
  Receive Date: 20160321
  Receipt Date: 20160321
  Transmission Date: 20160526
  Serious: Yes (Other)
  Sender: FDA-Public Use
  Company Number: IR-MYLANLABS-2016M1011900

PATIENT

DRUGS (1)
  1. LIDOCAINE. [Suspect]
     Active Substance: LIDOCAINE
     Indication: ANAESTHESIA
     Dosage: 1% OF UNPRESERVED INTRACAMERAL LIDOCAINE, 0.5 CC TWICE IN THE SAME DAY DURING SURGERY
     Route: 031

REACTIONS (2)
  - Blindness transient [Recovered/Resolved]
  - Posterior capsule rupture [Recovered/Resolved]
